FAERS Safety Report 7215219-4 (Version None)
Quarter: 2011Q1

REPORT INFORMATION
  Report Type: 
  Country: None (occurrence: None)
  Receive Date: 20110107
  Receipt Date: 20101105
  Transmission Date: 20110831
  Serious: No
  Sender: FDA-Public Use
  Company Number: A0891167A

PATIENT
  Age: 53 Year
  Sex: Female

DRUGS (6)
  1. ATENOLOL [Concomitant]
  2. LOVAZA [Suspect]
     Dosage: 2CAP TWICE PER DAY
     Route: 048
     Dates: start: 20101001
  3. REQUIP [Concomitant]
  4. ACTIVELLA [Concomitant]
  5. ZYRTEC [Concomitant]
  6. TRIAMTERENE AND HYDROCHLOROTHIAZIDE [Concomitant]

REACTIONS (1)
  - FAECES DISCOLOURED [None]
